FAERS Safety Report 11518939 (Version 1)
Quarter: 2015Q3

REPORT INFORMATION
  Report Type: Report from Study
  Country: US (occurrence: US)
  Receive Date: 20150917
  Receipt Date: 20150917
  Transmission Date: 20151125
  Serious: Yes (Other)
  Sender: FDA-Public Use
  Company Number: US-GILEAD-2015-0171967

PATIENT
  Age: 65 Year
  Sex: Female

DRUGS (2)
  1. SOFOSBUVIR [Suspect]
     Active Substance: SOFOSBUVIR
     Indication: CHRONIC HEPATITIS C
     Dosage: 400 MG, UNK
     Route: 048
     Dates: start: 20140723, end: 20141019
  2. OLYSIO [Suspect]
     Active Substance: SIMEPREVIR
     Indication: CHRONIC HEPATITIS C
     Dosage: 150 MG, UNK
     Route: 048
     Dates: start: 20140723, end: 20141019

REACTIONS (10)
  - Influenza [Unknown]
  - Hepatitis C [Unknown]
  - Nausea [Unknown]
  - Chapped lips [Unknown]
  - Abdominal pain upper [Unknown]
  - Urinary tract infection [Unknown]
  - Dry skin [Unknown]
  - Hepatic cancer [Unknown]
  - Drug ineffective [Unknown]
  - Sunburn [Unknown]

NARRATIVE: CASE EVENT DATE: 201504
